FAERS Safety Report 9165720 (Version 3)
Quarter: 2013Q2

REPORT INFORMATION
  Report Type: Report from Study
  Country: DE (occurrence: DE)
  Receive Date: 20130315
  Receipt Date: 20130530
  Transmission Date: 20140414
  Serious: Yes (Hospitalization)
  Sender: FDA-Public Use
  Company Number: DE-UCBSA-080388

PATIENT
  Sex: Female

DRUGS (4)
  1. VIMPAT [Suspect]
     Indication: EPILEPSY
     Dosage: DOSE: 100 MG DAILY
     Dates: start: 20091104
  2. VIMPAT [Suspect]
     Indication: EPILEPSY
     Dosage: DOSE: 150 MG DAILY
     Dates: start: 2010, end: 2010
  3. VIMPAT [Suspect]
     Indication: EPILEPSY
     Dosage: DOSE: 225 MG DAILY
     Dates: start: 2010
  4. LEVETIRACETAM [Concomitant]
     Indication: EPILEPSY
     Dosage: DOSE: 3000 MG DAILY

REACTIONS (1)
  - Convulsion [Unknown]
